FAERS Safety Report 25509122 (Version 1)
Quarter: 2025Q3

REPORT INFORMATION
  Report Type: Report from Study
  Country: EU (occurrence: EU)
  Receive Date: 20250703
  Receipt Date: 20250703
  Transmission Date: 20251021
  Serious: Yes (Hospitalization, Other)
  Sender: CELLTRION
  Company Number: None

PATIENT

DRUGS (2)
  1. TRASTUZUMAB [Suspect]
     Active Substance: TRASTUZUMAB
     Indication: Adenocarcinoma of salivary gland
     Route: 042
     Dates: start: 20240522, end: 20240522
  2. TAXOTERE [Suspect]
     Active Substance: DOCETAXEL
     Indication: Adenocarcinoma of salivary gland
     Route: 042
     Dates: start: 20240522, end: 20240522

REACTIONS (2)
  - Presyncope [Recovered/Resolved]
  - Off label use [Recovered/Resolved]

NARRATIVE: CASE EVENT DATE: 20240522
